FAERS Safety Report 12855639 (Version 1)
Quarter: 2016Q4

REPORT INFORMATION
  Report Type: Spontaneous
  Country: US (occurrence: US)
  Receive Date: 20161017
  Receipt Date: 20161017
  Transmission Date: 20170207
  Serious: No
  Sender: FDA-Public Use
  Company Number: US-TAIHO ONCOLOGY INC-EU-2016-00725

PATIENT
  Age: 73 Year
  Sex: Male
  Weight: 110.78 kg

DRUGS (1)
  1. LONSURF [Suspect]
     Active Substance: TIPIRACIL HYDROCHLORIDE\TRIFLURIDINE
     Indication: COLON CANCER
     Dosage: CURRENT CYCLE 11 STARTED ON 29/AUG/2016
     Route: 048
     Dates: start: 20151016

REACTIONS (2)
  - Blood count abnormal [Unknown]
  - Disease progression [Unknown]

NARRATIVE: CASE EVENT DATE: 201608
